FAERS Safety Report 23577251 (Version 6)
Quarter: 2024Q3

REPORT INFORMATION
  Report Type: Spontaneous
  Country: US (occurrence: US)
  Receive Date: 20240228
  Receipt Date: 20240829
  Transmission Date: 20241017
  Serious: No
  Sender: VERTEX
  Company Number: US-VERTEX PHARMACEUTICALS-2024-003097

PATIENT
  Sex: Male
  Weight: 19 kg

DRUGS (9)
  1. TRIKAFTA [Suspect]
     Active Substance: ELEXACAFTOR\IVACAFTOR\TEZACAFTOR
     Indication: Cystic fibrosis
     Dosage: 1 ORANGE PACKET IN AM AND 1 PINK PACKET IN PM
     Route: 048
     Dates: start: 20230704
  2. TRIKAFTA [Suspect]
     Active Substance: ELEXACAFTOR\IVACAFTOR\TEZACAFTOR
     Dosage: SWITCHED DOSES: AM TO PM AND PM TO AM
     Route: 048
     Dates: start: 20240106, end: 20240129
  3. TRIKAFTA [Suspect]
     Active Substance: ELEXACAFTOR\IVACAFTOR\TEZACAFTOR
     Dosage: BACK TO NORMAL - 1 ORANGE PACKET IN AM AND 1 PINK PACKET IN PM
     Route: 048
     Dates: start: 2024, end: 20240720
  4. MELATONIN [Suspect]
     Active Substance: MELATONIN
     Indication: Sleep disorder
     Route: 065
  5. MELATONIN [Suspect]
     Active Substance: MELATONIN
     Indication: Initial insomnia
  6. FAMOTIDINE [Concomitant]
     Active Substance: FAMOTIDINE
     Dosage: 40 MG/ 5 ML
  7. LACTULOSE [Concomitant]
     Active Substance: LACTULOSE
     Dosage: 10 GM/ 15 ML
  8. SODIUM CHLORIDE [Concomitant]
     Active Substance: SODIUM CHLORIDE
     Route: 055
  9. ALBUTEROL SULFATE [Concomitant]
     Active Substance: ALBUTEROL SULFATE

REACTIONS (11)
  - Frustration tolerance decreased [Unknown]
  - Affect lability [Unknown]
  - Aggression [Not Recovered/Not Resolved]
  - Screaming [Not Recovered/Not Resolved]
  - Defiant behaviour [Not Recovered/Not Resolved]
  - Respiratory syncytial virus infection [Recovered/Resolved]
  - Streptococcal infection [Recovered/Resolved]
  - Pseudomonas infection [Recovered/Resolved]
  - Nightmare [Unknown]
  - Sleep disorder [Recovered/Resolved]
  - Influenza [Recovered/Resolved]

NARRATIVE: CASE EVENT DATE: 20230101
